FAERS Safety Report 5606741-2 (Version None)
Quarter: 2008Q1

REPORT INFORMATION
  Report Type: 
  Country: None (occurrence: None)
  Receive Date: 20080125
  Receipt Date: 20080118
  Transmission Date: 20080703
  Serious: Yes (Other)
  Sender: FDA-Public Use
  Company Number: 022775

PATIENT
  Age: 17 Year
  Sex: Male

DRUGS (3)
  1. CLARAVIS [Suspect]
     Indication: ACNE
     Dosage: 40 MG, QD, ORAL
     Route: 048
     Dates: start: 20070828
  2. CLARAVIS [Suspect]
     Indication: SCAR
     Dosage: 40 MG, QD, ORAL
     Route: 048
     Dates: start: 20070828
  3. ALBUTEROL [Concomitant]

REACTIONS (1)
  - LIGAMENT RUPTURE [None]
